FAERS Safety Report 4560732-1 (Version None)
Quarter: 2005Q1

REPORT INFORMATION
  Report Type: 
  Country: None (occurrence: None)
  Receive Date: 20050121
  Receipt Date: 20050112
  Transmission Date: 20050727
  Serious: Yes (Other)
  Sender: FDA-Public Use
  Company Number: 2005-01-1202

PATIENT
  Age: 78 Year
  Sex: Female

DRUGS (3)
  1. GENTAMICIN [Suspect]
     Dosage: 80 MG BID INTRAVENOUS
     Route: 042
  2. NARCAN [Concomitant]
  3. ZANTAC [Concomitant]

REACTIONS (2)
  - EAR DISORDER [None]
  - HYPOACUSIS [None]
